FAERS Safety Report 5203795-2 (Version None)
Quarter: 2007Q1

REPORT INFORMATION
  Report Type: 
  Country: None (occurrence: None)
  Receive Date: 20070105
  Receipt Date: 20061222
  Transmission Date: 20070707
  Serious: Yes (Hospitalization)
  Sender: FDA-Public Use
  Company Number: US018947

PATIENT
  Age: 62 Year
  Sex: Female
  Weight: 75.4 kg

DRUGS (10)
  1. ARSENIC TRIOXIDE [Suspect]
     Indication: MYELOFIBROSIS
     Dosage: 19 MG TWICE WEEKLY INTRAVENOUS DRIP
     Route: 041
     Dates: start: 20061017
  2. THALIDOMIDE [Concomitant]
  3. ASCORBIC ACID [Concomitant]
  4. DECADRON [Concomitant]
  5. MAGNESIUM OXIDE [Concomitant]
  6. POTASSIUM CHLORIDE [Concomitant]
  7. DAPSONE [Concomitant]
  8. COMBIVENT  /01033501/ [Concomitant]
  9. ALBUTEROL [Concomitant]
  10. PERCOCET [Concomitant]

REACTIONS (4)
  - ABDOMINAL PAIN [None]
  - HAEMORRHAGE [None]
  - INFARCTION [None]
  - SPLENOMEGALY [None]
